FAERS Safety Report 8021974-6 (Version None)
Quarter: 2012Q1

REPORT INFORMATION
  Report Type: 
  Country: None (occurrence: None)
  Receive Date: 20120104
  Receipt Date: 20111230
  Transmission Date: 20120608
  Serious: Yes (Congenital Anomaly, Other)
  Sender: FDA-Public Use
  Company Number: PHHY2010GB90040

PATIENT

DRUGS (6)
  1. ACETAMINOPHEN [Suspect]
     Dosage: MATERNAL DOSE: 7.5 G
     Route: 064
  2. CLOTRIMAZOLE [Suspect]
     Dosage: UNK UKN, UNK
     Route: 064
  3. CO-DANTHRAMER [Suspect]
     Dosage: UNK UKN, UNK
     Route: 064
  4. CEFADROXIL [Suspect]
     Dosage: UNK UKN, UNK
     Route: 064
  5. ACYCLOVIR [Suspect]
     Dosage: UNK UKN, UNK
     Route: 064
  6. DIHYDROCODEINE BITARTRATE INJ [Suspect]
     Indication: ILL-DEFINED DISORDER
     Dosage: UNK UKN, UNK
     Route: 064

REACTIONS (3)
  - SPINA BIFIDA [None]
  - STRABISMUS [None]
  - FOETAL EXPOSURE DURING PREGNANCY [None]
